FAERS Safety Report 4565194-6 (Version None)
Quarter: 2005Q1

REPORT INFORMATION
  Report Type: 
  Country: None (occurrence: None)
  Receive Date: 20050127
  Receipt Date: 20050127
  Transmission Date: 20050727
  Serious: Yes (Hospitalization)
  Sender: FDA-Public Use
  Company Number: None

PATIENT
  Sex: Female

DRUGS (1)
  1. SEROQUEL [Suspect]
     Indication: SCHIZOPHRENIA
     Dosage: 600 MG QD @HS PO
     Route: 048
     Dates: start: 20040924, end: 20050101

REACTIONS (2)
  - SCHIZOPHRENIA [None]
  - TREATMENT NONCOMPLIANCE [None]
